FAERS Safety Report 23794722 (Version 3)
Quarter: 2024Q3

REPORT INFORMATION
  Report Type: Spontaneous
  Country: US (occurrence: US)
  Receive Date: 20240429
  Receipt Date: 20240723
  Transmission Date: 20241016
  Serious: Yes (Death)
  Sender: ROCHE
  Company Number: US-ROCHE-3553017

PATIENT
  Age: 72 Year
  Sex: Female

DRUGS (5)
  1. EMICIZUMAB [Suspect]
     Active Substance: EMICIZUMAB
     Indication: Von Willebrand^s disease
     Dosage: WITH INDUCTION DOSING OF 3 MG/KG WEEKLY FOR 4 WEEKS, AND MAINTENANCE DOSE OF 3 MG/KG EVERY 2 WEEK
     Route: 042
     Dates: start: 202211
  2. EMICIZUMAB [Suspect]
     Active Substance: EMICIZUMAB
     Dosage: MAINTENANCE DOSE OF 3 MG/KG EVERY 2 WEEK
     Route: 042
  3. FEIBA [Concomitant]
     Active Substance: ANTI-INHIBITOR COAGULANT COMPLEX
  4. NOVOSEVEN [Concomitant]
     Active Substance: COAGULATION FACTOR VIIA RECOMBINANT HUMAN
  5. BYCLOT [Concomitant]
     Active Substance: COAGULATION FACTOR VII HUMAN\COAGULATION FACTOR X HUMAN

REACTIONS (2)
  - Cerebral haemorrhage [Fatal]
  - Off label use [Fatal]

NARRATIVE: CASE EVENT DATE: 20230601
